FAERS Safety Report 8251364-2 (Version None)
Quarter: 2012Q2

REPORT INFORMATION
  Report Type: 
  Country: None (occurrence: None)
  Receive Date: 20120402
  Receipt Date: 20120323
  Transmission Date: 20120825
  Serious: Yes (Other)
  Sender: FDA-Public Use
  Company Number: FR-GLAXOSMITHKLINE-B0791069A

PATIENT
  Age: 17 Year
  Sex: Male

DRUGS (1)
  1. VENTOLIN [Suspect]
     Indication: OFF LABEL USE
     Dosage: 15PUFF SINGLE DOSE
     Route: 061
     Dates: start: 20120204, end: 20120204

REACTIONS (5)
  - INTENTIONAL DRUG MISUSE [None]
  - DRUG ADMINISTERED AT INAPPROPRIATE SITE [None]
  - THERMAL BURN [None]
  - PAIN [None]
  - SCAR [None]
